FAERS Safety Report 9664821 (Version 2)
Quarter: 2013Q4

REPORT INFORMATION
  Report Type: Report from Study
  Country: JP (occurrence: JP)
  Receive Date: 20131101
  Receipt Date: 20131126
  Transmission Date: 20140711
  Serious: Yes (Death, Hospitalization, Other)
  Sender: FDA-Public Use
  Company Number: JP-TAKEDA-2013TJP002346

PATIENT
  Age: 81 Year
  Sex: Male

DRUGS (5)
  1. LANSOPRAZOLE [Suspect]
     Indication: PROPHYLAXIS AGAINST GASTROINTESTINAL ULCER
     Dosage: 15 MG, QD
     Route: 048
     Dates: start: 20111003
  2. VOLTAREN                           /00372302/ [Concomitant]
     Indication: SPINAL COMPRESSION FRACTURE
     Dosage: 75 MG, 1 DAYS
     Route: 048
     Dates: start: 20110916
  3. ALLEGRA [Concomitant]
     Dosage: 120 MG, 1 DAYS
     Route: 048
  4. MAGLAX [Concomitant]
     Dosage: 1000 MG, 1 DAYS
     Route: 048
  5. PREDONINE                          /00016201/ [Concomitant]
     Dosage: 5 MG, 1 DAYS
     Route: 048

REACTIONS (3)
  - Mucinous adenocarcinoma of appendix [Fatal]
  - Condition aggravated [Fatal]
  - Pneumonia [Fatal]
